FAERS Safety Report 21436691 (Version 1)
Quarter: 2022Q4

REPORT INFORMATION
  Report Type: Spontaneous
  Country: US (occurrence: US)
  Receive Date: 20221010
  Receipt Date: 20221010
  Transmission Date: 20230113
  Serious: No
  Sender: FDA-Public Use
  Company Number: US-BIOGEN-2022BI01159323

PATIENT
  Age: 6 Year
  Sex: Female

DRUGS (11)
  1. SPINRAZA [Suspect]
     Active Substance: NUSINERSEN
     Indication: Spinal muscular atrophy
     Dosage: LOADING DOSE
     Route: 050
  2. SPINRAZA [Suspect]
     Active Substance: NUSINERSEN
     Dosage: LOADING DOSE
     Route: 050
  3. SPINRAZA [Suspect]
     Active Substance: NUSINERSEN
     Dosage: LOADING DOSE
     Route: 050
  4. SPINRAZA [Suspect]
     Active Substance: NUSINERSEN
     Dosage: LOADING DOSE
     Route: 050
  5. SPINRAZA [Suspect]
     Active Substance: NUSINERSEN
     Dosage: MAINTENANCE DOSE
     Route: 050
  6. TYLENOL [Concomitant]
     Active Substance: ACETAMINOPHEN
     Indication: Product used for unknown indication
     Dosage: 167MG/5ML TAKE 4 ML BY MOUTH EVERY 4 HOURS AS NEEDED
     Route: 050
  7. ERYTHROMYCIN [Concomitant]
     Active Substance: ERYTHROMYCIN
     Indication: Product used for unknown indication
     Dosage: MIX 1 TAB IN 30 ML WATER GIVE 6 ML, (50MG) 3 TIMES A DAY
  8. FAMOTIDINE [Concomitant]
     Active Substance: FAMOTIDINE
     Indication: Product used for unknown indication
     Dosage: 20 MG/2.5ML TAKE 5 MG BY MOUTH EVERY MORNING AND 10 MG QPM
     Route: 050
  9. Florajen Acidophilus [Concomitant]
     Indication: Product used for unknown indication
     Route: 050
  10. LEVALBUTEROL [Concomitant]
     Active Substance: LEVALBUTEROL
     Indication: Product used for unknown indication
     Dosage: 1.25MG/3ML NEB SOLUTION, TAKE 3 ML (1.25MG) BY NEBULIZATION 2 TIMES DAILY AND Q4H PRN COUGH, WHEE...
     Route: 050
  11. UREA [Concomitant]
     Active Substance: UREA
     Indication: Product used for unknown indication
     Route: 050

REACTIONS (2)
  - Asthenia [Unknown]
  - Iron deficiency anaemia [Unknown]

NARRATIVE: CASE EVENT DATE: 20210916
